FAERS Safety Report 7414260-6 (Version None)
Quarter: 2011Q1

REPORT INFORMATION
  Report Type: 
  Country: None (occurrence: None)
  Receive Date: 20110302
  Receipt Date: 20101111
  Transmission Date: 20110831
  Serious: Yes (Hospitalization)
  Sender: FDA-Public Use
  Company Number: 318392

PATIENT
  Age: 50 Year
  Sex: Female

DRUGS (3)
  1. DYAZIDE [Concomitant]
  2. NOVOLIN N [Suspect]
     Indication: TYPE 2 DIABETES MELLITUS
     Dosage: 18 U, AT BEDTIME, SUBCUTANEOUS
     Route: 058
  3. NORVASC [Concomitant]

REACTIONS (3)
  - LIP SWELLING [None]
  - HYPOGLYCAEMIC UNCONSCIOUSNESS [None]
  - PRURITUS [None]
